FAERS Safety Report 9219066 (Version 2)
Quarter: 2013Q2

REPORT INFORMATION
  Report Type: Report from Study
  Country: US (occurrence: US)
  Receive Date: 20130409
  Receipt Date: 20130423
  Transmission Date: 20140414
  Serious: Yes (Death)
  Sender: FDA-Public Use
  Company Number: PHEH2013US007958

PATIENT
  Age: 75 Year
  Sex: Female

DRUGS (17)
  1. TASIGNA [Suspect]
     Dosage: 400 MG, BID
     Route: 048
     Dates: start: 20130116
  2. LEVOTHYROXINE [Concomitant]
  3. ISOSORBIDE [Concomitant]
  4. FUROSEMIDE [Concomitant]
  5. CARVEDILOL [Concomitant]
  6. PERCOCET [Concomitant]
  7. CYMBALTA [Concomitant]
  8. MORPHINE ^ADRIAN^ [Concomitant]
  9. VIT D [Concomitant]
  10. NIACIN [Concomitant]
  11. PRAVASTATIN [Concomitant]
  12. ASA [Concomitant]
     Dosage: 81 MG
  13. ADVAIR [Concomitant]
  14. SPIRIVA [Concomitant]
  15. PROAIR (FLUTICASONE PROPIONATE) [Concomitant]
  16. LIDOCAINE [Concomitant]
  17. TYLENOL [Concomitant]

REACTIONS (1)
  - Death [Fatal]
